FAERS Safety Report 13148535 (Version 1)
Quarter: 2017Q1

REPORT INFORMATION
  Report Type: Spontaneous
  Country: US (occurrence: US)
  Receive Date: 20170125
  Receipt Date: 20170125
  Transmission Date: 20170428
  Serious: No
  Sender: FDA-Public Use
  Company Number: US-HORIZON-RAV-0018-2017

PATIENT
  Age: 3 Year
  Sex: Female

DRUGS (2)
  1. CITRULLINE [Suspect]
     Active Substance: CITRULLINE
     Dosage: 2.2 G INCREASED TO TO 2.4 G
  2. RAVICTI [Suspect]
     Active Substance: GLYCEROL PHENYLBUTYRATE
     Indication: ORNITHINE TRANSCARBAMOYLASE DEFICIENCY
     Dosage: INCREASED FROM 1.9 ML TID TO 2 ML TID
     Dates: start: 20160113

REACTIONS (1)
  - Amino acid level decreased [Unknown]
